FAERS Safety Report 7963115-7 (Version None)
Quarter: 2011Q4

REPORT INFORMATION
  Report Type: 
  Country: None (occurrence: None)
  Receive Date: 20111207
  Receipt Date: 20111123
  Transmission Date: 20120403
  Serious: Yes (Other)
  Sender: FDA-Public Use
  Company Number: CA-ROCHE-1017918

PATIENT
  Sex: Female

DRUGS (1)
  1. XOLAIR [Suspect]
     Indication: ASTHMA
     Route: 058
     Dates: start: 20051124

REACTIONS (3)
  - NO ADVERSE EVENT [None]
  - BLOOD PRESSURE INCREASED [None]
  - MATERNAL EXPOSURE DURING PREGNANCY [None]
